FAERS Safety Report 9433277 (Version 2)
Quarter: 2013Q4

REPORT INFORMATION
  Report Type: Spontaneous
  Country: US (occurrence: US)
  Receive Date: 20130731
  Receipt Date: 20131022
  Transmission Date: 20140711
  Serious: Yes (Hospitalization)
  Sender: FDA-Public Use
  Company Number: US-ELI_LILLY_AND_COMPANY-US201306000999

PATIENT
  Age: 68 Year
  Sex: Male

DRUGS (4)
  1. CIALIS [Suspect]
     Indication: ERECTILE DYSFUNCTION
     Dosage: 20 MG, PRN
  2. CIALIS [Suspect]
     Dosage: 1 DF, PRN
  3. CIALIS [Suspect]
     Dosage: 10 MG, PRN
  4. FLOMAX [Concomitant]
     Indication: MICTURITION URGENCY

REACTIONS (4)
  - Colitis [Recovered/Resolved]
  - Body temperature increased [Recovered/Resolved]
  - Flushing [Recovered/Resolved]
  - Wrong technique in drug usage process [Unknown]
